FAERS Safety Report 9042619 (Version 1)
Quarter: 2013Q1

REPORT INFORMATION
  Report Type: Report from Study
  Country: US (occurrence: US)
  Receive Date: 20130129
  Receipt Date: 20130129
  Transmission Date: 20140127
  Serious: No
  Sender: FDA-Public Use
  Company Number: US-ABBOTT-12P-163-0905194-00

PATIENT
  Age: 41 Year
  Sex: Male

DRUGS (5)
  1. HUMIRA 40 MG/0.8 ML PEN [Suspect]
     Indication: PSORIATIC ARTHROPATHY
     Dates: start: 20120105
  2. SULFASALAZINE [Concomitant]
     Indication: PRODUCT USED FOR UNKNOWN INDICATION
  3. LEVOTHYROXINE [Concomitant]
     Indication: HYPOTHYROIDISM
     Dosage: DAILY
  4. FISH OIL [Concomitant]
     Indication: MEDICAL DIET
     Dosage: DAILY
  5. VALTREX [Concomitant]
     Indication: HERPES VIRUS INFECTION
     Dosage: DAILY

REACTIONS (2)
  - Sinusitis [Not Recovered/Not Resolved]
  - Hypertension [Unknown]
